FAERS Safety Report 9209018 (Version 1)
Quarter: 2013Q2

REPORT INFORMATION
  Report Type: Spontaneous
  Country: IT (occurrence: IT)
  Receive Date: 20130404
  Receipt Date: 20130404
  Transmission Date: 20140414
  Serious: Yes (Hospitalization)
  Sender: FDA-Public Use
  Company Number: IT-ACCORD-017021

PATIENT
  Age: 67 Year
  Sex: Male

DRUGS (7)
  1. TACHIDOL [Concomitant]
  2. FOLIDEX [Concomitant]
  3. KEPPRA [Concomitant]
     Dosage: ORAL USE
     Route: 048
  4. SOLDESAM [Concomitant]
  5. CARDIAZOL-PARACODINA [Concomitant]
  6. PARIET [Concomitant]
  7. GLIMEPIRIDE [Suspect]
     Indication: DIABETES MELLITUS
     Route: 048
     Dates: start: 20130303, end: 20130319

REACTIONS (3)
  - Bradykinesia [Recovered/Resolved]
  - Hypoglycaemia [Recovered/Resolved]
  - Bradyphrenia [Recovered/Resolved]
